FAERS Safety Report 7084866-5 (Version None)
Quarter: 2010Q4

REPORT INFORMATION
  Report Type: 
  Country: None (occurrence: None)
  Receive Date: 20101103
  Receipt Date: 20101103
  Transmission Date: 20110411
  Serious: Yes (Life-Threatening, Hospitalization)
  Sender: FDA-Public Use
  Company Number: None

PATIENT
  Sex: Male

DRUGS (2)
  1. HUMIRA [Suspect]
     Indication: CROHN'S DISEASE
     Dosage: 40 MG EVERY 2 WEEKS SQ
     Route: 058
     Dates: start: 20070401, end: 20080501
  2. HUMIRA [Suspect]
     Indication: CROHN'S DISEASE
     Dosage: 40 MG EVERY 2 WEEKS SQ
     Route: 058
     Dates: start: 20081001, end: 20091001

REACTIONS (6)
  - BIPOLAR DISORDER [None]
  - DELUSION [None]
  - HALLUCINATION [None]
  - INSOMNIA [None]
  - PARANOIA [None]
  - SUICIDE ATTEMPT [None]
